FAERS Safety Report 6219154-X (Version None)
Quarter: 2009Q2

REPORT INFORMATION
  Report Type: 
  Country: None (occurrence: None)
  Receive Date: 20090609
  Receipt Date: 20090529
  Transmission Date: 20091009
  Serious: Yes (Hospitalization)
  Sender: FDA-Public Use
  Company Number: US-BAYER-200913801NA

PATIENT
  Age: 47 Year
  Sex: Male

DRUGS (8)
  1. BETASERON [Suspect]
     Indication: RELAPSING-REMITTING MULTIPLE SCLEROSIS
     Dates: end: 20090101
  2. NEXIUM [Concomitant]
  3. ALLEGRA [Concomitant]
  4. FLONASE [Concomitant]
  5. TOPROL-XL [Concomitant]
  6. OXYBUTYNIN [Concomitant]
  7. FINASTERIDE [Concomitant]
  8. ANTIBIOTICS [Concomitant]
     Indication: INJECTION SITE CELLULITIS

REACTIONS (3)
  - INJECTION SITE ABSCESS [None]
  - INJECTION SITE CELLULITIS [None]
  - SEPSIS [None]
